FAERS Safety Report 9323801 (Version 2)
Quarter: 2013Q2

REPORT INFORMATION
  Report Type: Spontaneous
  Country: JP (occurrence: JP)
  Receive Date: 20130603
  Receipt Date: 20130617
  Transmission Date: 20140414
  Serious: Yes (Hospitalization)
  Sender: FDA-Public Use
  Company Number: JP-ELI_LILLY_AND_COMPANY-JP201305007878

PATIENT
  Age: 77 Year
  Sex: Female
  Weight: 37.5 kg

DRUGS (22)
  1. FORTEO [Suspect]
     Indication: OSTEOPOROSIS
     Dosage: UNK
     Route: 058
     Dates: start: 20130430, end: 20130503
  2. BROCIN-CODEINE [Concomitant]
     Indication: COUGH
     Dosage: UNK MG, UNK
     Route: 048
     Dates: start: 20130430, end: 20130430
  3. WYPAX [Concomitant]
     Dosage: 0.5 MG, QD
  4. BAKTAR [Concomitant]
     Dosage: UNK
  5. ISCOTIN [Concomitant]
     Dosage: 300 MG, QD
  6. LAC-B [Concomitant]
     Dosage: 1 G, UNK
  7. MAGNESIUM OXIDE [Concomitant]
     Dosage: 0.68 G, TID
  8. MUCOSOLVAN [Concomitant]
     Dosage: 15 MG, TID
  9. PREDNISOLONE [Concomitant]
     Indication: RHEUMATOID ARTHRITIS
     Dosage: UNK
     Route: 048
     Dates: end: 20130503
  10. PREDNISOLONE [Concomitant]
     Dosage: UNK
     Route: 048
     Dates: start: 20130516
  11. MAGLAX [Concomitant]
     Indication: CONSTIPATION
     Dosage: UNK
     Route: 048
     Dates: end: 20130503
  12. MAGLAX [Concomitant]
     Dosage: UNK
     Route: 048
     Dates: start: 20130516
  13. GASMOTIN [Concomitant]
     Indication: GASTROOESOPHAGEAL REFLUX DISEASE
     Dosage: UNK
     Dates: end: 20130503
  14. GASMOTIN [Concomitant]
     Dosage: UNK
     Dates: start: 20130516
  15. PARIET [Concomitant]
     Indication: GASTROOESOPHAGEAL REFLUX DISEASE
     Dosage: UNK
     Dates: end: 20130503
  16. PARIET [Concomitant]
     Dosage: UNK
     Dates: start: 20130516
  17. ROCALTROL [Concomitant]
     Indication: OSTEOPOROSIS
     Dosage: UNK
     Dates: end: 20130503
  18. ROCALTROL [Concomitant]
     Dosage: UNK
     Dates: start: 20130516
  19. CALONAL [Concomitant]
     Indication: BACK PAIN
     Dosage: UNK MG, UNK
     Dates: end: 20130503
  20. CALONAL [Concomitant]
     Dosage: UNK
     Dates: start: 20130516
  21. PROGRAF [Concomitant]
     Indication: RHEUMATOID ARTHRITIS
     Dosage: UNK
     Dates: start: 20121023, end: 20130503
  22. PROGRAF [Concomitant]
     Dosage: UNK
     Dates: start: 20130516

REACTIONS (5)
  - Hyponatraemia [Recovered/Resolved]
  - Constipation [Recovered/Resolved]
  - Vomiting [Recovered/Resolved]
  - Blood creatine phosphokinase increased [Recovered/Resolved]
  - Pyrexia [Recovering/Resolving]
